FAERS Safety Report 25240031 (Version 1)
Quarter: 2025Q2

REPORT INFORMATION
  Report Type: Other
  Country: US (occurrence: US)
  Receive Date: 20250425
  Receipt Date: 20250425
  Transmission Date: 20250717
  Serious: Yes (Death, Life-Threatening, Congenital Anomaly, Other)
  Sender: EMD SERONO INC
  Company Number: US-Merck Healthcare KGaA-2025019674

PATIENT
  Weight: 5 kg

DRUGS (2)
  1. METFORMIN [Suspect]
     Active Substance: METFORMIN HYDROCHLORIDE
     Indication: Type 2 diabetes mellitus
  2. GLYBURIDE [Suspect]
     Active Substance: GLYBURIDE
     Indication: Type 2 diabetes mellitus

REACTIONS (12)
  - Death neonatal [Fatal]
  - Laryngeal stenosis [Unknown]
  - Apgar score low [Unknown]
  - Endotracheal intubation complication [Unknown]
  - Shoulder dystocia [Unknown]
  - Large for dates baby [Unknown]
  - Macrosomia [Unknown]
  - Cardiomegaly [Unknown]
  - Pancreatic islets hyperplasia [Unknown]
  - Eosinophilia [Unknown]
  - Charcot-Leyden crystals [Unknown]
  - Foetal exposure during pregnancy [Recovered/Resolved]
